FAERS Safety Report 15198271 (Version 2)
Quarter: 2018Q3

REPORT INFORMATION
  Report Type: Spontaneous
  Country: IT (occurrence: IT)
  Receive Date: 20180725
  Receipt Date: 20180729
  Transmission Date: 20181010
  Serious: Yes (Hospitalization)
  Sender: FDA-Public Use
  Company Number: PHHY2018IT048054

PATIENT
  Age: 29 Year
  Sex: Male

DRUGS (8)
  1. OLANZAPINE. [Suspect]
     Active Substance: OLANZAPINE
     Indication: PRODUCT USED FOR UNKNOWN INDICATION
     Dosage: 20 MG, UNK (TOTAL)
     Route: 048
     Dates: start: 20161108
  2. NIMESULIDE [Suspect]
     Active Substance: NIMESULIDE
     Dosage: 300 MG, UNK (TOTAL)
     Route: 048
     Dates: start: 20161109
  3. EFEXOR [Suspect]
     Active Substance: VENLAFAXINE HYDROCHLORIDE
     Dosage: 450 MG, UNK (TOTAL)
     Route: 048
     Dates: start: 20161109
  4. DEPAKIN CHRONO [Suspect]
     Active Substance: VALPROIC ACID
     Indication: PRODUCT USED FOR UNKNOWN INDICATION
     Dosage: 9000 MG, UNK (TOTAL)
     Route: 048
     Dates: start: 20161108
  5. DEPAKIN CHRONO [Suspect]
     Active Substance: VALPROIC ACID
     Dosage: 9000 MG, UNK (TOTAL)
     Route: 048
     Dates: start: 20161109
  6. NIMESULIDE [Suspect]
     Active Substance: NIMESULIDE
     Indication: PRODUCT USED FOR UNKNOWN INDICATION
     Dosage: 300 MG, UNK (TOTAL)
     Route: 048
     Dates: start: 20161108
  7. OLANZAPINE. [Suspect]
     Active Substance: OLANZAPINE
     Dosage: 20 MG, UNK (TOTAL)
     Route: 048
     Dates: start: 20161109
  8. EFEXOR [Suspect]
     Active Substance: VENLAFAXINE HYDROCHLORIDE
     Indication: PRODUCT USED FOR UNKNOWN INDICATION
     Dosage: 450 MG, UNK (TOTAL)
     Route: 048
     Dates: start: 20161108

REACTIONS (5)
  - Sopor [Recovered/Resolved]
  - Drug abuse [Recovered/Resolved]
  - Dyskinesia [Recovered/Resolved]
  - Mydriasis [Recovered/Resolved]
  - Agitation [Recovered/Resolved]

NARRATIVE: CASE EVENT DATE: 20161109
